FAERS Safety Report 4372428-X (Version None)
Quarter: 2004Q2

REPORT INFORMATION
  Report Type: 
  Country: None (occurrence: None)
  Receive Date: 20040526
  Receipt Date: 20040513
  Transmission Date: 20050107
  Serious: Yes (Other)
  Sender: FDA-Public Use
  Company Number: DE-JNJFOC-20040503070

PATIENT
  Age: 93 Year
  Sex: Female
  Weight: 50 kg

DRUGS (2)
  1. RISPERDAL [Suspect]
     Indication: VASCULAR DEMENTIA
     Dosage: 0.5 MG, ORAL; 0.5 MG, IN 1 DAY, ORAL
     Route: 048
     Dates: start: 20030101
  2. RISPERDAL [Suspect]
     Indication: VASCULAR DEMENTIA
     Dosage: 0.5 MG, ORAL; 0.5 MG, IN 1 DAY, ORAL
     Route: 048
     Dates: start: 20040405

REACTIONS (2)
  - PRURITUS [None]
  - RENAL FAILURE [None]
